FAERS Safety Report 10962481 (Version 1)
Quarter: 2015Q1

REPORT INFORMATION
  Report Type: Spontaneous
  Country: US (occurrence: None)
  Receive Date: 20150226
  Receipt Date: 20150226
  Transmission Date: 20150721
  Serious: No
  Sender: FDA-Public Use
  Company Number: TPA2009A00709

PATIENT
  Age: 56 Year
  Sex: Male
  Weight: 113.4 kg

DRUGS (3)
  1. COLCHICINE. [Concomitant]
     Active Substance: COLCHICINE
  2. ULORIC [Suspect]
     Active Substance: FEBUXOSTAT
     Indication: GOUT
     Dates: start: 20090417, end: 20090418
  3. PROBENECID. [Concomitant]
     Active Substance: PROBENECID

REACTIONS (2)
  - Arthralgia [None]
  - Gout [None]

NARRATIVE: CASE EVENT DATE: 20090417
